FAERS Safety Report 8648062 (Version 2)
Quarter: 2014Q1

REPORT INFORMATION
  Report Type: Spontaneous
  Country: US (occurrence: None)
  Receive Date: 20120323
  Receipt Date: 20130305
  Transmission Date: 20141002
  Serious: Yes (Other)
  Sender: FDA-Public Use
  Company Number: 163-21880-11100563

PATIENT
  Age: 73 Year
  Sex: Female
  Weight: 44.45 kg

DRUGS (9)
  1. REVLIMID [Suspect]
     Indication: LYMPHOMA
     Dosage: 10 MG, 21/7, PO
     Route: 048
     Dates: start: 20111003
  2. VICODIN [Concomitant]
  3. METOPROLOL TARTRATE [Concomitant]
  4. LORAZEPAM [Concomitant]
  5. OMEPRAZOLE [Concomitant]
  6. BACTROBAN [Concomitant]
  7. BENADRYL [Concomitant]
  8. BACTRIM [Concomitant]
  9. RITUXAN [Concomitant]

REACTIONS (5)
  - Rash generalised [None]
  - Rash [None]
  - Dermatitis allergic [None]
  - Lymphoma [None]
  - Disease progression [None]
